FAERS Safety Report 23257994 (Version 5)
Quarter: 2024Q1

REPORT INFORMATION
  Report Type: Report from Study
  Country: CA (occurrence: CA)
  Receive Date: 20231204
  Receipt Date: 20240328
  Transmission Date: 20240410
  Serious: Yes (Death, Hospitalization, Other)
  Sender: FDA-Public Use
  Company Number: CA-TAKEDA-2023TUS114752

PATIENT
  Age: 60 Year
  Sex: Female

DRUGS (3)
  1. VEDOLIZUMAB [Suspect]
     Active Substance: VEDOLIZUMAB
     Indication: Acute graft versus host disease in intestine
     Dosage: 300 MILLIGRAM
     Route: 042
     Dates: start: 20231014
  2. PREDNISONE [Concomitant]
     Active Substance: PREDNISONE
     Dosage: 5 MILLIGRAM, QD
     Route: 048
  3. RUXOLITINIB [Concomitant]
     Active Substance: RUXOLITINIB
     Dosage: 10 MILLIGRAM, BID
     Route: 048

REACTIONS (4)
  - Death [Fatal]
  - Rectal haemorrhage [Unknown]
  - Faecal volume increased [Unknown]
  - Off label use [Unknown]

NARRATIVE: CASE EVENT DATE: 20231014
